FAERS Safety Report 18560935 (Version 1)
Quarter: 2020Q4

REPORT INFORMATION
  Report Type: Spontaneous
  Country: FI (occurrence: FI)
  Receive Date: 20201130
  Receipt Date: 20201130
  Transmission Date: 20210114
  Serious: Yes (Hospitalization)
  Sender: FDA-Public Use
  Company Number: FI-GUERBET-FI-20200021

PATIENT
  Age: 19 Year
  Sex: Male

DRUGS (1)
  1. DOTAREM [Suspect]
     Active Substance: GADOTERATE MEGLUMINE
     Indication: PRODUCT USED FOR UNKNOWN INDICATION
     Route: 042
     Dates: start: 20201027, end: 20201027

REACTIONS (5)
  - Eye irritation [Unknown]
  - Urticaria [Unknown]
  - Face oedema [Unknown]
  - Eyelid oedema [Unknown]
  - Erythema [Unknown]

NARRATIVE: CASE EVENT DATE: 20201027
